FAERS Safety Report 6088578-6 (Version None)
Quarter: 2009Q1

REPORT INFORMATION
  Report Type: 
  Country: None (occurrence: None)
  Receive Date: 20090224
  Receipt Date: 20090218
  Transmission Date: 20090719
  Serious: Yes (Hospitalization)
  Sender: FDA-Public Use
  Company Number: CA-BIOGENIDEC-2009BI001774

PATIENT
  Age: 36 Year
  Sex: Female

DRUGS (1)
  1. AVONEX [Suspect]
     Indication: MULTIPLE SCLEROSIS
     Route: 030
     Dates: start: 20080123, end: 20090120

REACTIONS (5)
  - ABASIA [None]
  - ANAESTHETIC COMPLICATION NEUROLOGICAL [None]
  - EXCORIATION [None]
  - FEMALE STERILISATION [None]
  - MULTIPLE SCLEROSIS RELAPSE [None]
